FAERS Safety Report 21958657 (Version 1)
Quarter: 2023Q1

REPORT INFORMATION
  Report Type: Spontaneous
  Country: US (occurrence: US)
  Receive Date: 20230206
  Receipt Date: 20230206
  Transmission Date: 20230417
  Serious: Yes (Hospitalization, Other)
  Sender: FDA-Public Use
  Company Number: US-AMNEAL PHARMACEUTICALS-2023-AMRX-00283

PATIENT
  Age: 77 Year
  Sex: Male
  Weight: 82.54 kg

DRUGS (4)
  1. RYTARY [Suspect]
     Active Substance: CARBIDOPA\LEVODOPA
     Indication: Product used for unknown indication
     Dosage: 61.25/245 MG (TAKE 2 CAPSULES BY MOUTH FOUR TIMES A DAY (AT 7AM,11AM,3PM, AND 7PM)
     Route: 048
  2. RYTARY [Suspect]
     Active Substance: CARBIDOPA\LEVODOPA
     Dosage: 48.75-195MG 2 CAPSULES FOUR TIMES DAILY 4-5 HOURS BETWEEN
     Route: 048
     Dates: start: 20220608
  3. RYTARY [Suspect]
     Active Substance: CARBIDOPA\LEVODOPA
     Dosage: 48.75/195 MG- TAKE 2 CAPSULES BY MOUTH FOUR TIMES A DAY (4-5 HOURS BETWEEN DOSES); 61.25/245 MG- TAK
     Route: 048
  4. RYTARY [Suspect]
     Active Substance: CARBIDOPA\LEVODOPA
     Dosage: 48.75/195 MG TAKE 1 CAPSULE BY MOUTH 4 TIMES A DAY (4-5 HOURS BETWEEN DOSES) ALONG WITH 1 CAPSULE OF
     Route: 048
     Dates: start: 20220926

REACTIONS (1)
  - Syncope [Not Recovered/Not Resolved]

NARRATIVE: CASE EVENT DATE: 20230117
